FAERS Safety Report 7529573-7 (Version None)
Quarter: 2011Q2

REPORT INFORMATION
  Report Type: 
  Country: None (occurrence: None)
  Receive Date: 20110531
  Receipt Date: 20110516
  Transmission Date: 20111010
  Serious: Yes (Hospitalization, Disabling)
  Sender: FDA-Public Use
  Company Number: 2010MA005194

PATIENT
  Sex: Female
  Weight: 81.0124 kg

DRUGS (29)
  1. PRILOSEC OTC [Concomitant]
  2. AVANDARYL [Concomitant]
  3. ACTOS [Concomitant]
  4. TRIAMADOL [Concomitant]
  5. COGENTIN [Concomitant]
  6. JANUVIA [Concomitant]
  7. METOCLOPRAMIDE [Suspect]
     Indication: ABDOMINAL PAIN
     Dosage: 10 MG, PO
     Route: 048
     Dates: start: 20061001, end: 20070801
  8. METOCLOPRAMIDE [Suspect]
     Indication: GASTROINTESTINAL DISORDER
     Dosage: 10 MG, PO
     Route: 048
     Dates: start: 20061001, end: 20070801
  9. TRMAZEPAM [Concomitant]
  10. LANTUS [Concomitant]
  11. ALBUTEROL SULFATE AUTOHALER [Concomitant]
  12. TETRACYCLINE [Concomitant]
  13. HYDROCORTISONE [Concomitant]
  14. LISINOPRIL [Concomitant]
  15. INSULIN [Concomitant]
  16. LASIX [Concomitant]
  17. CELEXA [Concomitant]
  18. LOMOTIL [Concomitant]
  19. ZEGERID [Concomitant]
  20. TEMAZEPAM [Concomitant]
  21. LOVASTATIN [Concomitant]
  22. NYSTATIN [Concomitant]
  23. ATENOLOL [Concomitant]
  24. ZOLOFT [Concomitant]
  25. BENADRYL [Concomitant]
  26. STEROIDS [Concomitant]
  27. ELOCON [Concomitant]
  28. AVANDIA [Concomitant]
  29. CITALOPRAM HYDROBROMIDE [Concomitant]

REACTIONS (54)
  - GINGIVAL PAIN [None]
  - BLOOD GLUCOSE INCREASED [None]
  - BLOOD PRESSURE DIASTOLIC DECREASED [None]
  - BLOOD MAGNESIUM DECREASED [None]
  - CEREBROVASCULAR ACCIDENT [None]
  - TARDIVE DYSKINESIA [None]
  - HYPERSOMNIA [None]
  - DENTAL CARIES [None]
  - DECREASED APPETITE [None]
  - BRONCHITIS [None]
  - PYREXIA [None]
  - DIARRHOEA [None]
  - GLYCOSYLATED HAEMOGLOBIN INCREASED [None]
  - WHITE BLOOD CELL COUNT DECREASED [None]
  - PLATELET COUNT DECREASED [None]
  - NERVOUS SYSTEM DISORDER [None]
  - ASTHENIA [None]
  - DIZZINESS [None]
  - ACTIVITIES OF DAILY LIVING IMPAIRED [None]
  - OEDEMA PERIPHERAL [None]
  - ENTEROCOCCUS TEST POSITIVE [None]
  - HAEMATOCRIT DECREASED [None]
  - LUNG DISORDER [None]
  - INCORRECT DRUG ADMINISTRATION DURATION [None]
  - NAUSEA [None]
  - HYPOGLYCAEMIA [None]
  - ABDOMINAL PAIN UPPER [None]
  - OXYGEN SATURATION DECREASED [None]
  - BLOOD PH INCREASED [None]
  - PROTEIN TOTAL DECREASED [None]
  - BLOOD CALCIUM DECREASED [None]
  - DYSKINESIA [None]
  - EXTRAPYRAMIDAL DISORDER [None]
  - DEFORMITY [None]
  - MENTAL DISORDER [None]
  - FAMILY STRESS [None]
  - SOMNOLENCE [None]
  - MENTAL IMPAIRMENT [None]
  - TOOTH EXTRACTION [None]
  - ASPARTATE AMINOTRANSFERASE INCREASED [None]
  - BLOOD ALBUMIN DECREASED [None]
  - ECONOMIC PROBLEM [None]
  - PAIN [None]
  - URINARY TRACT INFECTION [None]
  - FATIGUE [None]
  - RASH [None]
  - HEADACHE [None]
  - EPSTEIN-BARR VIRUS INFECTION [None]
  - DRUG SCREEN POSITIVE [None]
  - SINUS DISORDER [None]
  - AORTIC ARTERIOSCLEROSIS [None]
  - GASTROENTERITIS [None]
  - STAPHYLOCOCCUS TEST POSITIVE [None]
  - TREATMENT NONCOMPLIANCE [None]
